FAERS Safety Report 4470058-2 (Version None)
Quarter: 2004Q3

REPORT INFORMATION
  Report Type: 
  Country: None (occurrence: None)
  Receive Date: 20040920
  Receipt Date: 20040714
  Transmission Date: 20050211
  Serious: Yes (Hospitalization)
  Sender: FDA-Public Use
  Company Number: PHEH2004US07521

PATIENT
  Age: 69 Year
  Sex: Female

DRUGS (4)
  1. ZOMETA [Suspect]
     Indication: BREAST CANCER METASTATIC
     Dosage: 4 MG MONTHLY, INTRAVENOUS
     Route: 042
     Dates: start: 20030103, end: 20040708
  2. GLYBURIDE [Concomitant]
  3. FEMARA [Concomitant]
  4. ATIVAN [Concomitant]

REACTIONS (4)
  - BLOOD CREATININE INCREASED [None]
  - BLOOD UREA INCREASED [None]
  - HAEMODIALYSIS [None]
  - RENAL FAILURE [None]
